FAERS Safety Report 10033393 (Version 1)
Quarter: 2014Q1

REPORT INFORMATION
  Report Type: Spontaneous
  Country: US (occurrence: US)
  Receive Date: 20140325
  Receipt Date: 20140325
  Transmission Date: 20141002
  Serious: Yes (Other)
  Sender: FDA-Public Use
  Company Number: US-AMGEN-USASP2014020413

PATIENT
  Age: 49 Year
  Sex: Male

DRUGS (1)
  1. ENBREL [Suspect]
     Indication: PSORIATIC ARTHROPATHY
     Dosage: 50 UNK, UNK
     Route: 065
     Dates: start: 20121001

REACTIONS (3)
  - Surgery [Recovered/Resolved]
  - Respiratory tract infection [Recovered/Resolved]
  - Swelling [Recovered/Resolved]
